FAERS Safety Report 15675895 (Version 1)
Quarter: 2018Q4

REPORT INFORMATION
  Report Type: Report from Study
  Country: None (occurrence: BR)
  Receive Date: 20181130
  Receipt Date: 20181130
  Transmission Date: 20190205
  Serious: Yes (Life-Threatening, Hospitalization, Other)
  Sender: FDA-Public Use
  Company Number: BR-ABBVIE-18K-020-2573853-00

PATIENT
  Age: 41 Year
  Sex: Female
  Weight: 72 kg

DRUGS (3)
  1. HUMIRA [Suspect]
     Active Substance: ADALIMUMAB
     Indication: PSORIATIC ARTHROPATHY
     Route: 058
     Dates: start: 20120108
  2. TRAMAL [Concomitant]
     Active Substance: TRAMADOL
     Indication: PRODUCT USED FOR UNKNOWN INDICATION
  3. MORPHINE [Concomitant]
     Active Substance: MORPHINE
     Indication: PRODUCT USED FOR UNKNOWN INDICATION

REACTIONS (11)
  - Weight increased [Unknown]
  - Procedural pain [Unknown]
  - Endometriosis [Not Recovered/Not Resolved]
  - Product administered at inappropriate site [Unknown]
  - Infection [Unknown]
  - Gangrene [Unknown]
  - Uterine cyst [Unknown]
  - Haemorrhagic cyst [Unknown]
  - Leiomyoma [Unknown]
  - Computerised tomogram abnormal [Unknown]
  - Appendicitis [Unknown]

NARRATIVE: CASE EVENT DATE: 2015
